FAERS Safety Report 10810060 (Version 1)
Quarter: 2015Q1

REPORT INFORMATION
  Report Type: Spontaneous
  Country: US (occurrence: None)
  Receive Date: 20150212
  Receipt Date: 20150212
  Transmission Date: 20150721
  Serious: Yes (Hospitalization)
  Sender: FDA-Public Use
  Company Number: None

PATIENT
  Age: 51 Year
  Sex: Female

DRUGS (3)
  1. TRAMADOL [Concomitant]
     Active Substance: TRAMADOL
  2. LOSARTAN/HCTZ [Concomitant]
     Active Substance: HYDROCHLOROTHIAZIDE\LOSARTAN
  3. DAYPRO [Suspect]
     Active Substance: OXAPROZIN
     Indication: OSTEOARTHRITIS
     Dosage: 1800MG, DAILY, DIVIDED DOSES, ORAL
     Route: 048
     Dates: start: 20141113, end: 20141120

REACTIONS (2)
  - Thrombocytopenia [None]
  - Petechiae [None]

NARRATIVE: CASE EVENT DATE: 20141120
